FAERS Safety Report 7765365-1 (Version None)
Quarter: 2011Q3

REPORT INFORMATION
  Report Type: 
  Country: None (occurrence: None)
  Receive Date: 20110921
  Receipt Date: 20110914
  Transmission Date: 20111222
  Serious: Yes (Hospitalization, Other)
  Sender: FDA-Public Use
  Company Number: US-AMGEN-USASP2011047404

PATIENT
  Age: 66 Year
  Sex: Male

DRUGS (2)
  1. ENBREL [Suspect]
     Indication: PSORIATIC ARTHROPATHY
     Dosage: 50 MG, 2 TIMES/WK
     Dates: start: 20110708
  2. ENBREL [Suspect]
     Indication: PSORIASIS

REACTIONS (4)
  - DIZZINESS [None]
  - ASTHENIA [None]
  - PSORIASIS [None]
  - ATRIAL FIBRILLATION [None]
